FAERS Safety Report 6588372-3 (Version None)
Quarter: 2010Q1

REPORT INFORMATION
  Report Type: 
  Country: None (occurrence: None)
  Receive Date: 20100218
  Receipt Date: 20100208
  Transmission Date: 20100710
  Serious: Yes (Hospitalization)
  Sender: FDA-Public Use
  Company Number: IN-SANOFI-AVENTIS-2010SA007432

PATIENT
  Age: 43 Year
  Sex: Female
  Weight: 78 kg

DRUGS (6)
  1. LEFLUNOMIDE [Suspect]
     Indication: RHEUMATOID ARTHRITIS
     Route: 048
     Dates: start: 20041101, end: 20100101
  2. HYDROXYCHLOROQUINE SULFATE [Concomitant]
     Indication: RHEUMATOID ARTHRITIS
     Route: 048
     Dates: start: 20040101
  3. FOLVITE [Concomitant]
     Route: 048
     Dates: start: 20040101
  4. ALL OTHER THERAPEUTIC PRODUCTS [Concomitant]
     Route: 048
     Dates: start: 20040101
  5. ALL OTHER THERAPEUTIC PRODUCTS [Concomitant]
  6. SULFASALAZINE [Concomitant]
     Route: 048
     Dates: start: 20040101

REACTIONS (4)
  - CONVULSION [None]
  - MUSCULOSKELETAL STIFFNESS [None]
  - PYREXIA [None]
  - VOMITING [None]
